FAERS Safety Report 7593556-1 (Version None)
Quarter: 2011Q2

REPORT INFORMATION
  Report Type: 
  Country: None (occurrence: None)
  Receive Date: 20110609
  Receipt Date: 20110405
  Transmission Date: 20111010
  Serious: No
  Sender: FDA-Public Use
  Company Number: TH-2011-00075

PATIENT
  Age: 44 Year
  Sex: Female

DRUGS (1)
  1. EGRIFTA [Suspect]
     Indication: LIPODYSTROPHY ACQUIRED
     Dates: start: 20110310, end: 20110403

REACTIONS (1)
  - HYPERSENSITIVITY [None]
